FAERS Safety Report 4317142-1 (Version None)
Quarter: 2004Q1

REPORT INFORMATION
  Report Type: 
  Country: None (occurrence: None)
  Receive Date: 20040312
  Receipt Date: 20040227
  Transmission Date: 20041129
  Serious: Yes (Hospitalization)
  Sender: FDA-Public Use
  Company Number: 2004PK00421

PATIENT
  Age: 70 Year
  Sex: Female
  Weight: 55 kg

DRUGS (6)
  1. BELOC ZOK [Suspect]
     Indication: HYPERTENSION
     Dosage: 95 MG DAILY PO
     Route: 048
     Dates: start: 20030706, end: 20030824
  2. CAPTOPRIL [Suspect]
     Indication: HYPERTENSION
     Dosage: 12.5 MG BID PO
     Route: 048
     Dates: start: 20030706, end: 20030824
  3. ASPIRIN [Suspect]
     Indication: MYOCARDIAL INFARCTION
     Dosage: 100 MG DAILY PO
     Route: 048
     Dates: start: 20030706, end: 20030824
  4. ASPIRIN [Suspect]
     Indication: PROPHYLAXIS
     Dosage: 100 MG DAILY PO
     Route: 048
     Dates: start: 20030706, end: 20030824
  5. INSULIN BASAL [Suspect]
     Indication: DIABETES MELLITUS
     Dates: start: 20020101, end: 20030824
  6. NOVONORM [Suspect]
     Indication: DIABETES MELLITUS
     Dosage: 1 MG TID PO
     Route: 048
     Dates: start: 20030706, end: 20030824

REACTIONS (4)
  - DRUG INTERACTION [None]
  - HYPOGLYCAEMIA [None]
  - LOSS OF CONSCIOUSNESS [None]
  - MEDICATION ERROR [None]
